FAERS Safety Report 18201204 (Version 1)
Quarter: 2020Q3

REPORT INFORMATION
  Report Type: Spontaneous
  Country: DE (occurrence: DE)
  Receive Date: 20200827
  Receipt Date: 20200827
  Transmission Date: 20201103
  Serious: Yes (Life-Threatening, Hospitalization)
  Sender: FDA-Public Use
  Company Number: DE-009507513-2008DEU012643

PATIENT
  Age: 78 Year
  Sex: Female

DRUGS (9)
  1. TORSEMIDE. [Concomitant]
     Active Substance: TORSEMIDE
     Dosage: 10 MG, 5?3?0?0, TABLETTEN
     Route: 048
  2. AMLODIPINE [Concomitant]
     Active Substance: AMLODIPINE BESYLATE
     Dosage: 5 MG, 1?0?0?0, TABLETTEN
     Route: 048
  3. ADENURIC [Concomitant]
     Active Substance: FEBUXOSTAT
     Dosage: 80 MG, 1?0?0?0, TABLETTEN
     Route: 048
  4. BISOPROLOL [Concomitant]
     Active Substance: BISOPROLOL
     Dosage: 5 MG, 1?0?1?0, TABLETTEN
     Route: 048
  5. RAMIPRIL. [Concomitant]
     Active Substance: RAMIPRIL
     Dosage: 5 MG, 1?0?0?0, TABLETTEN
     Route: 048
  6. RIVAROXABAN [Concomitant]
     Active Substance: RIVAROXABAN
     Dosage: 15 MG, 1?0?0?0, TABLETTEN
     Route: 048
  7. APIDRA [Concomitant]
     Active Substance: INSULIN GLULISINE
     Dosage: AMPOULES
     Route: 058
  8. TOUJEO [Concomitant]
     Active Substance: INSULIN GLARGINE
     Dosage: 18 IE, 1?0?0?0, AMPOULES
     Route: 058
  9. XELEVIA [Suspect]
     Active Substance: SITAGLIPTIN PHOSPHATE
     Dosage: 100 MG, 1?0?0?0, TABLETTEN
     Route: 048

REACTIONS (4)
  - Depressed level of consciousness [Unknown]
  - Hypothermia [Unknown]
  - Hypoglycaemia [Unknown]
  - Product prescribing error [Unknown]
